FAERS Safety Report 8034029-1 (Version None)
Quarter: 2011Q4

REPORT INFORMATION
  Report Type: 
  Country: None (occurrence: None)
  Receive Date: 20111202
  Receipt Date: 20100128
  Transmission Date: 20120403
  Serious: Yes (Hospitalization, Disabling, Other)
  Sender: FDA-Public Use
  Company Number: 2010SP006027

PATIENT
  Age: 28 Year
  Sex: Female
  Weight: 81.6475 kg

DRUGS (1)
  1. NUVARING [Suspect]
     Indication: CONTRACEPTION
     Dates: start: 20050701, end: 20070202

REACTIONS (10)
  - HAEMORRHAGIC ANAEMIA [None]
  - MIGRAINE [None]
  - THROMBOSIS [None]
  - UNINTENDED PREGNANCY [None]
  - BRADYCARDIA [None]
  - BACK PAIN [None]
  - PULMONARY EMBOLISM [None]
  - HYPERTENSION [None]
  - PULMONARY INFARCTION [None]
  - ABDOMINAL PAIN [None]
